FAERS Safety Report 23969757 (Version 2)
Quarter: 2024Q3

REPORT INFORMATION
  Report Type: Report from Study
  Country: ZA (occurrence: ZA)
  Receive Date: 20240613
  Receipt Date: 20240705
  Transmission Date: 20241016
  Serious: No
  Sender: CELLTRION
  Company Number: ZA-CELLTRION INC.-2024ZA013782

PATIENT

DRUGS (1)
  1. INFLIXIMAB [Suspect]
     Active Substance: INFLIXIMAB
     Indication: Crohn^s disease
     Dosage: 600 MG AT 8 WEEKLY INTERVALS
     Route: 042

REACTIONS (1)
  - Unevaluable investigation [Unknown]

NARRATIVE: CASE EVENT DATE: 20240605
